FAERS Safety Report 13380667 (Version 2)
Quarter: 2020Q2

REPORT INFORMATION
  Report Type: Spontaneous
  Country: US (occurrence: US)
  Receive Date: 20170329
  Receipt Date: 20200407
  Transmission Date: 20200713
  Serious: Yes (Other)
  Sender: FDA-Public Use
  Company Number: US-ASTRAZENECA-2017SE30162

PATIENT
  Age: 675 Month
  Sex: Male
  Weight: 74.8 kg

DRUGS (52)
  1. PIOGLITAZONE. [Concomitant]
     Active Substance: PIOGLITAZONE
  2. ROSUVASTATIN. [Concomitant]
     Active Substance: ROSUVASTATIN
  3. ADVAIR DISKUS [Concomitant]
     Active Substance: FLUTICASONE PROPIONATE\SALMETEROL XINAFOATE
  4. VIGAMOX [Concomitant]
     Active Substance: MOXIFLOXACIN HYDROCHLORIDE
  5. ZOFRAN [Concomitant]
     Active Substance: ONDANSETRON HYDROCHLORIDE
  6. ECONAZOLE. [Concomitant]
     Active Substance: ECONAZOLE NITRATE
  7. BYDUREON [Suspect]
     Active Substance: EXENATIDE
     Route: 058
     Dates: start: 201408, end: 201607
  8. OMEPRAZOLE. [Concomitant]
     Active Substance: OMEPRAZOLE
     Dosage: DELAYED RELEASE
     Route: 048
  9. LATEX [Concomitant]
     Active Substance: NATURAL LATEX RUBBER
  10. VITAMIN D [Concomitant]
     Active Substance: VITAMIN D NOS
  11. TERBINAFINE. [Concomitant]
     Active Substance: TERBINAFINE
  12. ONDANSETRON [Concomitant]
     Active Substance: ONDANSETRON
  13. BISACODYL. [Concomitant]
     Active Substance: BISACODYL
  14. KETOROLAC [Concomitant]
     Active Substance: KETOROLAC TROMETHAMINE
  15. CHOLECALCIFEROL [Concomitant]
     Active Substance: CHOLECALCIFEROL
  16. PROAIR HFA [Concomitant]
     Active Substance: ALBUTEROL SULFATE
  17. CINNAMON. [Concomitant]
     Active Substance: CINNAMON
  18. CYCLOBENZAPRINE. [Concomitant]
     Active Substance: CYCLOBENZAPRINE
  19. MORPHINE [Concomitant]
     Active Substance: MORPHINE
  20. TOUJEO [Concomitant]
     Active Substance: INSULIN GLARGINE
  21. SIMVASTATIN. [Concomitant]
     Active Substance: SIMVASTATIN
  22. IOPHEN [Concomitant]
  23. INVOKANA [Concomitant]
     Active Substance: CANAGLIFLOZIN
  24. DOXYCYCLINE HYCLATE. [Concomitant]
     Active Substance: DOXYCYCLINE HYCLATE
  25. BYETTA [Suspect]
     Active Substance: EXENATIDE
     Route: 065
     Dates: start: 2014, end: 201606
  26. JANUVIA [Suspect]
     Active Substance: SITAGLIPTIN PHOSPHATE
     Route: 065
     Dates: start: 201110, end: 201704
  27. NIFEDIPINE. [Concomitant]
     Active Substance: NIFEDIPINE
  28. ECONAZOLE NITRATE. [Concomitant]
     Active Substance: ECONAZOLE NITRATE
  29. HYDROCODONE-ACETAMINOPHEN [Concomitant]
     Active Substance: ACETAMINOPHEN\HYDROCODONE
  30. CIPROFLOXACIN. [Concomitant]
     Active Substance: CIPROFLOXACIN
  31. JANUVIA [Suspect]
     Active Substance: SITAGLIPTIN PHOSPHATE
     Route: 065
     Dates: start: 200707, end: 201612
  32. PENICILLIN [Concomitant]
     Active Substance: PENICILLIN
  33. MECLIZINE [Concomitant]
     Active Substance: MECLIZINE HYDROCHLORIDE
  34. CLINDAMYCIN. [Concomitant]
     Active Substance: CLINDAMYCIN
  35. OXYCODONE-ACETAMINOPHEN [Concomitant]
     Active Substance: ACETAMINOPHEN\OXYCODONE HYDROCHLORIDE
  36. AMOXICILLIN. [Concomitant]
     Active Substance: AMOXICILLIN
  37. PEPCID [Concomitant]
     Active Substance: FAMOTIDINE
  38. JANUVIA [Suspect]
     Active Substance: SITAGLIPTIN PHOSPHATE
     Route: 048
     Dates: start: 20161027
  39. IBUPROFEN. [Concomitant]
     Active Substance: IBUPROFEN
  40. ASPIRIN. [Concomitant]
     Active Substance: ASPIRIN
  41. CEFDINIR. [Concomitant]
     Active Substance: CEFDINIR
  42. AZITHROMYCIN ANHYDROUS. [Concomitant]
     Active Substance: AZITHROMYCIN ANHYDROUS
  43. PHENAZOPYRIDINE. [Concomitant]
     Active Substance: PHENAZOPYRIDINE
  44. FLUTICASONE PROPIONATE. [Concomitant]
     Active Substance: FLUTICASONE PROPIONATE
  45. SULFAMETHOXAZOLE [Concomitant]
     Active Substance: SULFAMETHOXAZOLE
  46. METFORMIN [Concomitant]
     Active Substance: METFORMIN HYDROCHLORIDE
  47. JARDIANCE [Concomitant]
     Active Substance: EMPAGLIFLOZIN
  48. ACTOS [Concomitant]
     Active Substance: PIOGLITAZONE HYDROCHLORIDE
  49. LEVOTHYROXINE. [Concomitant]
     Active Substance: LEVOTHYROXINE
  50. PREDNISONE. [Concomitant]
     Active Substance: PREDNISONE
  51. METHYLPREDNISOLONE. [Concomitant]
     Active Substance: METHYLPREDNISOLONE
  52. MUPIROCIN. [Concomitant]
     Active Substance: MUPIROCIN

REACTIONS (2)
  - Pancreatic carcinoma [Unknown]
  - Pancreatic neuroendocrine tumour [Unknown]

NARRATIVE: CASE EVENT DATE: 200709
